FAERS Safety Report 4624177-8 (Version None)
Quarter: 2005Q1

REPORT INFORMATION
  Report Type: 
  Country: None (occurrence: None)
  Receive Date: 20050331
  Receipt Date: 20050318
  Transmission Date: 20050727
  Serious: Yes (Hospitalization)
  Sender: FDA-Public Use
  Company Number: FR-GLAXOSMITHKLINE-B0375782A

PATIENT
  Sex: Male
  Weight: 2.7 kg

DRUGS (1)
  1. DEROXAT [Suspect]
     Dosage: 20MG PER DAY
     Dates: start: 20040619, end: 20050219

REACTIONS (6)
  - CEREBRAL HAEMORRHAGE [None]
  - DRUG EXPOSURE DURING PREGNANCY [None]
  - EPILEPSY [None]
  - HYPOTONIA [None]
  - SLEEP APNOEA SYNDROME [None]
  - SUBDURAL HAEMATOMA [None]
